FAERS Safety Report 23840911 (Version 2)
Quarter: 2024Q2

REPORT INFORMATION
  Report Type: Spontaneous
  Country: US (occurrence: None)
  Receive Date: 20240510
  Receipt Date: 20240517
  Transmission Date: 20240716
  Serious: Yes (Other)
  Sender: FDA-Public Use
  Company Number: 2024A107468

PATIENT
  Sex: Male

DRUGS (7)
  1. PULMICORT TURBUHALER [Suspect]
     Active Substance: BUDESONIDE
     Indication: Asthma
     Dosage: UNKNOWN
     Route: 055
  2. CLONAZEPAM [Suspect]
     Active Substance: CLONAZEPAM
  3. ALBUTEROL [Concomitant]
     Active Substance: ALBUTEROL
  4. VIIBRYD [Concomitant]
     Active Substance: VILAZODONE HYDROCHLORIDE
  5. TRUVADA [Concomitant]
     Active Substance: EMTRICITABINE\TENOFOVIR DISOPROXIL FUMARATE
  6. MELATONIN [Concomitant]
     Active Substance: MELATONIN
  7. VIAGRA [Concomitant]
     Active Substance: SILDENAFIL CITRATE

REACTIONS (11)
  - Syncope [Unknown]
  - Fatigue [Unknown]
  - Asthenia [Unknown]
  - Insomnia [Unknown]
  - Nausea [Unknown]
  - Muscle tightness [Unknown]
  - Muscle strain [Unknown]
  - Dyspnoea [Unknown]
  - Chest discomfort [Unknown]
  - Heart rate increased [Unknown]
  - Drug ineffective [Unknown]
